FAERS Safety Report 14909813 (Version 3)
Quarter: 2019Q1

REPORT INFORMATION
  Report Type: Spontaneous
  Country: US (occurrence: US)
  Receive Date: 20180517
  Receipt Date: 20190207
  Transmission Date: 20190417
  Serious: Yes (Hospitalization, Other)
  Sender: FDA-Public Use
  Company Number: US-BAYER-2018-088552

PATIENT
  Age: 49 Year
  Sex: Male
  Weight: 117.91 kg

DRUGS (4)
  1. MELOXICAM. [Concomitant]
     Active Substance: MELOXICAM
     Indication: TENDON RUPTURE
     Dosage: UNK
     Dates: start: 201705, end: 201712
  2. CIPROFLOXACIN. [Suspect]
     Active Substance: CIPROFLOXACIN
     Indication: PROSTATITIS
     Dosage: 500 MG, UNK
     Dates: start: 201610
  3. CIPROFLOXACIN. [Suspect]
     Active Substance: CIPROFLOXACIN
     Indication: PROSTATE INFECTION
  4. HYDROCODONE [Concomitant]
     Active Substance: HYDROCODONE
     Indication: PAIN
     Dosage: UNK

REACTIONS (15)
  - Arthralgia [Not Recovered/Not Resolved]
  - Tendon disorder [None]
  - Cholecystitis chronic [None]
  - Joint stiffness [Not Recovered/Not Resolved]
  - Emotional distress [None]
  - Hyperlipidaemia [None]
  - Tendon rupture [Not Recovered/Not Resolved]
  - Muscular weakness [Not Recovered/Not Resolved]
  - Paraesthesia [Not Recovered/Not Resolved]
  - Neuropathy peripheral [Not Recovered/Not Resolved]
  - Pain in extremity [Not Recovered/Not Resolved]
  - Gastrointestinal disorder [None]
  - Anxiety [None]
  - Hypoaesthesia [Not Recovered/Not Resolved]
  - Hypertension [None]

NARRATIVE: CASE EVENT DATE: 20170501
